FAERS Safety Report 9235705 (Version 1)
Quarter: 2013Q2

REPORT INFORMATION
  Report Type: Spontaneous
  Country: US (occurrence: None)
  Receive Date: 20130416
  Receipt Date: 20130416
  Transmission Date: 20140414
  Serious: Yes (Hospitalization)
  Sender: FDA-Public Use
  Company Number: None

PATIENT
  Age: 33 Year
  Sex: Female
  Weight: 67.13 kg

DRUGS (1)
  1. LEVOFLOXACIN [Suspect]
     Indication: SINUSITIS
     Dosage: 1 TABLET/DAY 1 PO
     Route: 048
     Dates: start: 20130301, end: 20130301

REACTIONS (9)
  - Vomiting [None]
  - Gait disturbance [None]
  - Pyrexia [None]
  - Gastroenteritis viral [None]
  - Visual impairment [None]
  - Photophobia [None]
  - Burning sensation [None]
  - Dysstasia [None]
  - Tremor [None]
